FAERS Safety Report 10314312 (Version 1)
Quarter: 2014Q3

REPORT INFORMATION
  Report Type: Spontaneous
  Country: US (occurrence: US)
  Receive Date: 20140718
  Receipt Date: 20140718
  Transmission Date: 20150326
  Serious: Yes (Other)
  Sender: FDA-Public Use
  Company Number: US-GLAXOSMITHKLINE-A1081640A

PATIENT

DRUGS (4)
  1. KEPPRA [Suspect]
     Active Substance: LEVETIRACETAM
     Indication: EPILEPSY
     Dosage: 3000MG PER DAY
     Route: 065
  2. TOPAMAX [Suspect]
     Active Substance: TOPIRAMATE
     Indication: EPILEPSY
     Dosage: 600MG PER DAY
     Route: 065
  3. VIMPAT [Suspect]
     Active Substance: LACOSAMIDE
     Indication: EPILEPSY
     Dosage: 50MG TWICE PER DAY
     Route: 065
  4. LAMICTAL [Suspect]
     Active Substance: LAMOTRIGINE
     Indication: EPILEPSY
     Dosage: 300MG PER DAY
     Route: 065

REACTIONS (8)
  - Convulsion [Recovered/Resolved]
  - Overdose [Unknown]
  - Insomnia [Recovering/Resolving]
  - Ill-defined disorder [Recovering/Resolving]
  - Abasia [Unknown]
  - Drug administration error [Recovered/Resolved]
  - Dizziness [Recovering/Resolving]
  - Performance status decreased [Recovered/Resolved]
